FAERS Safety Report 7786880-0 (Version None)
Quarter: 2011Q3

REPORT INFORMATION
  Report Type: 
  Country: None (occurrence: None)
  Receive Date: 20110929
  Receipt Date: 20110927
  Transmission Date: 20111222
  Serious: Yes (Death, Hospitalization)
  Sender: FDA-Public Use
  Company Number: GB-PFIZER INC-2007005840

PATIENT
  Age: 54 Year
  Sex: Male
  Weight: 76.5 kg

DRUGS (5)
  1. INDOMETHACIN [Concomitant]
     Dates: start: 20060101
  2. INSULIN [Concomitant]
     Dates: start: 20060301
  3. SUNITINIB MALATE [Suspect]
     Indication: RENAL CELL CARCINOMA
     Dosage: 50 MG, 1XDAY, CYCLIC OD  4 WEEKS ON /2 WEEKS OFF
     Route: 048
     Dates: start: 20060406
  4. ALLOPURINOL [Concomitant]
     Dates: start: 20000801
  5. SUNITINIB MALATE [Suspect]
     Dosage: 37.5 MG, 1X/DAY, CYCLIC OD  4 WEEKS ON /2 WEEKS OFF
     Route: 048
     Dates: start: 20060523, end: 20070416

REACTIONS (1)
  - CEREBROVASCULAR ACCIDENT [None]
